FAERS Safety Report 23564351 (Version 1)
Quarter: 2024Q1

REPORT INFORMATION
  Report Type: Spontaneous
  Country: SA (occurrence: SA)
  Receive Date: 20240226
  Receipt Date: 20240226
  Transmission Date: 20240410
  Serious: Yes (Hospitalization)
  Sender: FDA-Public Use
  Company Number: SA-CHEPLA-2024002338

PATIENT
  Age: 49 Year
  Sex: Male

DRUGS (17)
  1. OLANZAPINE [Suspect]
     Active Substance: OLANZAPINE
     Indication: Schizophrenia
     Dosage: ONCE AT NIGHT ?DAILY DOSE: 5 MILLIGRAM
  2. RISPERIDONE [Suspect]
     Active Substance: RISPERIDONE
     Indication: Schizophrenia
  3. RISPERIDONE [Suspect]
     Active Substance: RISPERIDONE
     Indication: Treatment noncompliance
  4. HALOPERIDOL [Suspect]
     Active Substance: HALOPERIDOL
     Indication: Schizophrenia
  5. HALOPERIDOL [Suspect]
     Active Substance: HALOPERIDOL
     Indication: Treatment noncompliance
  6. HALOPERIDOL [Suspect]
     Active Substance: HALOPERIDOL
     Indication: Schizophrenia
     Route: 030
  7. HALOPERIDOL [Suspect]
     Active Substance: HALOPERIDOL
     Indication: Treatment noncompliance
     Route: 030
  8. HALOPERIDOL [Suspect]
     Active Substance: HALOPERIDOL
     Indication: Schizophrenia
     Route: 048
  9. HALOPERIDOL [Suspect]
     Active Substance: HALOPERIDOL
     Indication: Treatment noncompliance
     Route: 048
  10. HALOPERIDOL [Suspect]
     Active Substance: HALOPERIDOL
     Indication: Schizophrenia
     Dosage: (IN DIVIDED DOSES)?DAILY DOSE: 20 MILLIGRAM
     Route: 048
  11. HALOPERIDOL [Suspect]
     Active Substance: HALOPERIDOL
     Indication: Treatment noncompliance
     Dosage: (IN DIVIDED DOSES)?DAILY DOSE: 20 MILLIGRAM
     Route: 048
  12. LORAZEPAM [Suspect]
     Active Substance: LORAZEPAM
     Indication: Schizophrenia
     Route: 030
  13. ZUCLOPENTHIXOL [Suspect]
     Active Substance: ZUCLOPENTHIXOL
     Indication: Treatment noncompliance
  14. ARIPIPRAZOLE [Suspect]
     Active Substance: ARIPIPRAZOLE
     Indication: Schizophrenia
     Dosage: DAILY DOSE: 10 MILLIGRAM
  15. TRIFLUOPERAZINE [Suspect]
     Active Substance: TRIFLUOPERAZINE HYDROCHLORIDE
     Indication: Treatment noncompliance
  16. BENZTROPINE [Concomitant]
     Active Substance: BENZTROPINE
     Route: 030
  17. BENZTROPINE [Concomitant]
     Active Substance: BENZTROPINE
     Dosage: TWICE A DAY ?DAILY DOSE: 4 MILLIGRAM
     Route: 048

REACTIONS (1)
  - Spasmodic dysphonia [Recovered/Resolved]
